FAERS Safety Report 14902313 (Version 3)
Quarter: 2022Q4

REPORT INFORMATION
  Report Type: Report from Study
  Country: US (occurrence: US)
  Receive Date: 20180516
  Receipt Date: 20221205
  Transmission Date: 20230113
  Serious: Yes (Hospitalization)
  Sender: FDA-Public Use
  Company Number: US-SHIRE-US201818012

PATIENT
  Age: 62 Year
  Sex: Female
  Weight: 80.7 kg

DRUGS (11)
  1. TEDUGLUTIDE [Suspect]
     Active Substance: TEDUGLUTIDE
     Indication: Short-bowel syndrome
     Dosage: 3.8 MG, 1X/DAY:QD (DAILY DOSE MG KG 0.05, DOSE PER WEEK 2)
     Route: 042
     Dates: start: 20140101
  2. TEDUGLUTIDE [Suspect]
     Active Substance: TEDUGLUTIDE
     Indication: Short-bowel syndrome
     Dosage: 3.8 MG, 1X/DAY:QD (DAILY DOSE MG KG 0.05, DOSE PER WEEK 2)
     Route: 042
     Dates: start: 20140101
  3. TEDUGLUTIDE [Suspect]
     Active Substance: TEDUGLUTIDE
     Indication: Short-bowel syndrome
     Dosage: 3.8 MG, 1X/DAY:QD (DAILY DOSE MG KG 0.05, DOSE PER WEEK 2)
     Route: 042
     Dates: start: 20140101
  4. TEDUGLUTIDE [Suspect]
     Active Substance: TEDUGLUTIDE
     Indication: Short-bowel syndrome
     Dosage: 3.8 MG, 1X/DAY:QD (DAILY DOSE MG KG 0.05, DOSE PER WEEK 2)
     Route: 042
     Dates: start: 20140101
  5. APRESOLINE HYDROCHLORIDE [Concomitant]
     Active Substance: HYDRALAZINE HYDROCHLORIDE
     Indication: Hypertension
     Dosage: UNK
  6. SUMATRIPTAN SUCCINATE [Concomitant]
     Active Substance: SUMATRIPTAN SUCCINATE
     Indication: Migraine
     Dosage: UNK
  7. ZOFRAN [Concomitant]
     Active Substance: ONDANSETRON HYDROCHLORIDE
     Indication: Prophylaxis of nausea and vomiting
     Dosage: 4 MILLIGRAM
     Route: 048
     Dates: start: 20201010
  8. PAMINE [Concomitant]
     Active Substance: METHSCOPOLAMINE BROMIDE
     Indication: Gastrooesophageal reflux disease
     Dosage: UNK
  9. MAGNESIUM OXIDE [Concomitant]
     Active Substance: MAGNESIUM OXIDE
     Dosage: 400 MILLIGRAM, BID
     Route: 048
     Dates: start: 20220103
  10. VORICONAZOLE [Concomitant]
     Active Substance: VORICONAZOLE
     Dosage: 200.00 MILLIGRAM, BID
     Route: 048
     Dates: start: 20220216
  11. TRAMADOL [Concomitant]
     Active Substance: TRAMADOL
     Indication: Pain management
     Dosage: 50 MILLIGRAM
     Route: 048
     Dates: start: 20201010, end: 20201214

REACTIONS (1)
  - Asthenia [Recovered/Resolved]

NARRATIVE: CASE EVENT DATE: 20160413
